FAERS Safety Report 21215411 (Version 3)
Quarter: 2022Q4

REPORT INFORMATION
  Report Type: Report from Study
  Country: None (occurrence: GB)
  Receive Date: 20220816
  Receipt Date: 20221021
  Transmission Date: 20230113
  Serious: Yes (Hospitalization, Other)
  Sender: FDA-Public Use
  Company Number: GB-AKCEA THERAPEUTICS, INC.-2021IS001732

PATIENT
  Age: 61 Year
  Sex: Female

DRUGS (5)
  1. TEGSEDI [Suspect]
     Active Substance: INOTERSEN SODIUM
     Indication: Hereditary neuropathic amyloidosis
     Route: 058
     Dates: start: 20200319
  2. DEVICE [Suspect]
     Active Substance: DEVICE
  3. TEGSEDI [Suspect]
     Active Substance: INOTERSEN SODIUM
     Route: 065
  4. NORTRIPTYLINE [Concomitant]
     Active Substance: NORTRIPTYLINE
     Route: 065
  5. NORTRIPTYLINE [Concomitant]
     Active Substance: NORTRIPTYLINE
     Route: 065

REACTIONS (32)
  - Infection [Unknown]
  - Foot fracture [Unknown]
  - Osteomyelitis [Unknown]
  - Mean cell volume decreased [Unknown]
  - Mean cell haemoglobin decreased [Unknown]
  - Red cell distribution width increased [Unknown]
  - Dysuria [Unknown]
  - Hyperthermia [Recovered/Resolved]
  - Hyperhidrosis [Unknown]
  - Malaise [Not Recovered/Not Resolved]
  - Feeling cold [Unknown]
  - Cold sweat [Unknown]
  - Dizziness [Not Recovered/Not Resolved]
  - Fear of injection [Unknown]
  - Vertigo [Unknown]
  - Dry mouth [Recovered/Resolved]
  - Vomiting [Unknown]
  - Nausea [Recovered/Resolved]
  - Chills [Unknown]
  - Illness [Unknown]
  - Fall [Unknown]
  - Urinary tract infection [Unknown]
  - Clumsiness [Unknown]
  - COVID-19 [Recovering/Resolving]
  - Platelet count increased [Unknown]
  - Localised infection [Unknown]
  - Balance disorder [Unknown]
  - Contusion [Unknown]
  - Oedema peripheral [Unknown]
  - Pyrexia [Unknown]
  - Nasopharyngitis [Unknown]
  - Alanine aminotransferase increased [Unknown]

NARRATIVE: CASE EVENT DATE: 20210901
